FAERS Safety Report 23087058 (Version 3)
Quarter: 2025Q4

REPORT INFORMATION
  Report Type: Spontaneous
  Country: EU (occurrence: EU)
  Receive Date: 20231020
  Receipt Date: 20251223
  Transmission Date: 20260118
  Serious: Yes (Hospitalization, Other)
  Sender: Haleon PLC
  Company Number: EU-ACIS-20231767

PATIENT
  Age: 87 Year
  Sex: Male
  Weight: 70 kg

DRUGS (5)
  1. DICLOFENAC [Suspect]
     Active Substance: DICLOFENAC
     Indication: Precancerous skin lesion
     Dosage: UNK ,TOPICAL (START OF THERAPY DATE: ABOUT THREE YEARS AGO; DAILY APPLICATION ON THE AFFECTED AREAS PRESCRIBED BY DERMATOLOGIST)
     Route: 050
  2. DICLOFENAC [Suspect]
     Active Substance: DICLOFENAC
     Indication: Actinic keratosis
     Dosage: FIRST ADMIN DATE: 2020 UNK (ACIS TOPICAL, START OF THERAPY DATE: ABOUT THREE YEARS AGO; DAILY APPLICATION ON THE AFFECTED AREAS)
     Route: 050
  3. TAMSULOSIN [Concomitant]
     Active Substance: TAMSULOSIN
     Indication: Benign prostatic hyperplasia
     Dosage: UNK (PRESCRIBED ABOUT 3 TO 4 YEARS AGO BY UROLOGIST1-0-0-0 PIECE BEFORE EATING)
  4. TAMSULOSIN [Concomitant]
     Active Substance: TAMSULOSIN
     Dosage: 0.4 MG, QD (0.4 MG, QD (PRESCRIBED ABOUT 3 TO 4 YEARS AGO BY UROLOGIST1-0-0-0 PIECE BEFORE EATING))
     Dates: start: 20221206
  5. RAMIPRIL [Concomitant]
     Active Substance: RAMIPRIL
     Indication: Hypertension
     Dosage: 5 MG, QD (1-0-1)
     Dates: start: 20221205

REACTIONS (7)
  - Renal impairment [Recovered/Resolved with Sequelae]
  - Incorrect product administration duration [Unknown]
  - Abdominal pain [Recovered/Resolved with Sequelae]
  - Volvulus of small bowel [Recovered/Resolved]
  - Gastrointestinal necrosis [Recovered/Resolved]
  - Papillary renal cell carcinoma [Recovered/Resolved]
  - Off label use [Unknown]

NARRATIVE: CASE EVENT DATE: 20220925
